FAERS Safety Report 17156782 (Version 2)
Quarter: 2021Q4

REPORT INFORMATION
  Report Type: Spontaneous
  Country: US (occurrence: None)
  Receive Date: 20191216
  Receipt Date: 20211223
  Transmission Date: 20220303
  Serious: Yes (Other)
  Sender: FDA-Public Use
  Company Number: US-ROCHE-2498422

PATIENT
  Sex: Male

DRUGS (2)
  1. HEMLIBRA [Suspect]
     Active Substance: EMICIZUMAB-KXWH
     Indication: Illness
     Dosage: 150 MG/0.7ML.
     Route: 058
     Dates: start: 20190811
  2. HEMLIBRA [Suspect]
     Active Substance: EMICIZUMAB-KXWH
     Indication: Factor VIII deficiency
     Dosage: 150 MG/0.7ML.
     Route: 058
     Dates: start: 202110

REACTIONS (2)
  - Haemorrhage [Recovered/Resolved]
  - Pain in extremity [Unknown]
